FAERS Safety Report 25260595 (Version 2)
Quarter: 2025Q2

REPORT INFORMATION
  Report Type: Spontaneous
  Country: AR (occurrence: AR)
  Receive Date: 20250501
  Receipt Date: 20250610
  Transmission Date: 20250717
  Serious: Yes (Other)
  Sender: NOVO NORDISK
  Company Number: AR-NOVOPROD-1406190

PATIENT
  Age: 45 Year
  Sex: Female
  Weight: 74 kg

DRUGS (8)
  1. SAXENDA [Suspect]
     Active Substance: LIRAGLUTIDE
     Indication: Obesity
  2. SAXENDA [Suspect]
     Active Substance: LIRAGLUTIDE
     Dates: end: 20250407
  3. CLONAZEPAM [Concomitant]
     Active Substance: CLONAZEPAM
     Indication: Insomnia
  4. VICTOZA [Concomitant]
     Active Substance: LIRAGLUTIDE
     Dates: start: 202501
  5. VICTOZA [Concomitant]
     Active Substance: LIRAGLUTIDE
     Dates: start: 20240415
  6. VICTOZA [Concomitant]
     Active Substance: LIRAGLUTIDE
     Dates: start: 20240307
  7. VICTOZA [Concomitant]
     Active Substance: LIRAGLUTIDE
     Indication: Product used for unknown indication
     Dates: start: 20240228
  8. VICTOZA [Concomitant]
     Active Substance: LIRAGLUTIDE
     Dates: start: 20240327

REACTIONS (7)
  - Mydriasis [Not Recovered/Not Resolved]
  - Vision blurred [Not Recovered/Not Resolved]
  - Hand fracture [Unknown]
  - Erythema nodosum [Unknown]
  - Urinary tract infection [Unknown]
  - Tooth infection [Unknown]
  - Anisocoria [Unknown]

NARRATIVE: CASE EVENT DATE: 20250212
